FAERS Safety Report 9187586 (Version 1)
Quarter: 2013Q1

REPORT INFORMATION
  Report Type: Spontaneous
  Country: US (occurrence: US)
  Receive Date: 20130325
  Receipt Date: 20130325
  Transmission Date: 20140127
  Serious: Yes (Hospitalization)
  Sender: FDA-Public Use
  Company Number: US-BAYER-2013-035278

PATIENT
  Age: 25 Year
  Sex: Female
  Weight: 59.41 kg

DRUGS (5)
  1. YAZ [Suspect]
  2. ACETAMINOPHEN [Concomitant]
  3. IBUPROFEN [Concomitant]
  4. PERCOCET [Concomitant]
  5. ZOFRAN [Concomitant]

REACTIONS (1)
  - Pulmonary embolism [None]
